FAERS Safety Report 21720645 (Version 1)
Quarter: 2022Q4

REPORT INFORMATION
  Report Type: Spontaneous
  Country: US (occurrence: US)
  Receive Date: 20221213
  Receipt Date: 20221213
  Transmission Date: 20230113
  Serious: No
  Sender: FDA-Public Use
  Company Number: US-STRIDES ARCOLAB LIMITED-2022SP012922

PATIENT
  Sex: Female
  Weight: 71.655 kg

DRUGS (4)
  1. MYCOPHENOLATE MOFETIL [Suspect]
     Active Substance: MYCOPHENOLATE MOFETIL
     Indication: Systemic lupus erythematosus
     Dosage: 325 MILLIGRAM, QD, ONCE A DAY
     Route: 048
     Dates: start: 2016, end: 20220930
  2. FERROUS GLUCONATE [Suspect]
     Active Substance: FERROUS GLUCONATE
     Indication: Supplementation therapy
     Dosage: 325 MILLIGRAM, QD, ONCE A DAY
     Route: 065
     Dates: start: 2019
  3. PREDNISOLONE [Suspect]
     Active Substance: PREDNISOLONE
     Indication: Systemic lupus erythematosus
     Dosage: 10 MILLIGRAM, QD, ONCE A DAY
     Route: 065
     Dates: start: 2016
  4. HYDROXYCHLOROQUINE [Suspect]
     Active Substance: HYDROXYCHLOROQUINE
     Indication: Systemic lupus erythematosus
     Dosage: 200 MILLIGRAM, QD, ONCE A DAY
     Route: 065
     Dates: start: 2016, end: 20220930

REACTIONS (2)
  - Maternal exposure during pregnancy [Unknown]
  - Off label use [Unknown]
